FAERS Safety Report 25550053 (Version 2)
Quarter: 2025Q3

REPORT INFORMATION
  Report Type: Spontaneous
  Country: US (occurrence: US)
  Receive Date: 20250714
  Receipt Date: 20250821
  Transmission Date: 20251021
  Serious: No
  Sender: BIOGEN
  Company Number: US-BIOGEN-2024BI01282779

PATIENT
  Age: 63 Year
  Sex: Female

DRUGS (1)
  1. VUMERITY [Suspect]
     Active Substance: DIROXIMEL FUMARATE
     Indication: Multiple sclerosis
     Route: 050
     Dates: start: 20230503, end: 20250711

REACTIONS (11)
  - Illness [Unknown]
  - Multiple sclerosis [Unknown]
  - Enzyme level increased [Unknown]
  - White blood cell count decreased [Recovered/Resolved]
  - Abdominal pain upper [Not Recovered/Not Resolved]
  - Hepatic enzyme increased [Unknown]
  - Nausea [Unknown]
  - Abdominal pain [Unknown]
  - Pruritus [Unknown]
  - Albumin urine present [Unknown]
  - Flushing [Unknown]

NARRATIVE: CASE EVENT DATE: 20240901
